FAERS Safety Report 16873806 (Version 1)
Quarter: 2019Q4

REPORT INFORMATION
  Report Type: Spontaneous
  Country: AU (occurrence: AU)
  Receive Date: 20191001
  Receipt Date: 20191001
  Transmission Date: 20200122
  Serious: Yes (Life-Threatening)
  Sender: FDA-Public Use
  Company Number: AU-GUERBET-AU-20190061

PATIENT
  Sex: Female

DRUGS (1)
  1. OPTIRAY 350 [Suspect]
     Active Substance: IOVERSOL
     Indication: ANGIOGRAM
     Route: 042
     Dates: start: 20190910, end: 20190910

REACTIONS (3)
  - Dyspnoea [Recovered/Resolved]
  - Hyporesponsive to stimuli [Recovered/Resolved]
  - Throat tightness [Recovered/Resolved]

NARRATIVE: CASE EVENT DATE: 20190910
